FAERS Safety Report 4322466-8 (Version None)
Quarter: 2004Q1

REPORT INFORMATION
  Report Type: 
  Country: None (occurrence: None)
  Receive Date: 20040323
  Receipt Date: 20040323
  Transmission Date: 20041129
  Serious: Yes (Other)
  Sender: FDA-Public Use
  Company Number: None

PATIENT
  Sex: Female
  Weight: 79.3795 kg

DRUGS (4)
  1. ADVAIR DISKUS 250/50 [Suspect]
     Indication: ASTHMA
     Dosage: 1 DAY RESPIRATORY
     Route: 055
  2. ADVAIR DISKUS 250/50 [Suspect]
     Indication: MULTIPLE ALLERGIES
     Dosage: 1 DAY RESPIRATORY
     Route: 055
  3. SINGULAIR [Suspect]
     Indication: ASTHMA
     Dosage: 1 DAY ORAL
     Route: 048
  4. SINGULAIR [Suspect]
     Indication: MULTIPLE ALLERGIES
     Dosage: 1 DAY ORAL
     Route: 048

REACTIONS (6)
  - AGITATION [None]
  - DIARRHOEA [None]
  - GASTROINTESTINAL PAIN [None]
  - PALPITATIONS [None]
  - WEIGHT DECREASED [None]
  - WEIGHT INCREASED [None]
